FAERS Safety Report 23432426 (Version 1)
Quarter: 2024Q1

REPORT INFORMATION
  Report Type: Spontaneous
  Country: US (occurrence: US)
  Receive Date: 20240123
  Receipt Date: 20240123
  Transmission Date: 20240410
  Serious: No
  Sender: FDA-Public Use
  Company Number: US-MYLANLABS-2024M1001994

PATIENT
  Sex: Female
  Weight: 62.14 kg

DRUGS (1)
  1. ESTRADIOL TRANSDERMAL SYSTEM [Suspect]
     Active Substance: ESTRADIOL
     Indication: Premature menopause
     Dosage: UNK
     Route: 062

REACTIONS (1)
  - Wrong technique in product usage process [Unknown]
